FAERS Safety Report 5409226-1 (Version None)
Quarter: 2007Q3

REPORT INFORMATION
  Report Type: 
  Country: None (occurrence: None)
  Receive Date: 20070807
  Receipt Date: 20070807
  Transmission Date: 20080115
  Serious: No
  Sender: FDA-Public Use
  Company Number: None

PATIENT
  Sex: Male

DRUGS (11)
  1. LEVAQUIN [Suspect]
     Indication: URINARY TRACT INFECTION
     Dosage: 500MG DAILY PO
     Route: 048
     Dates: start: 20070731, end: 20070804
  2. MORPHINE [Concomitant]
  3. CHLORAL HYDRATE [Concomitant]
  4. ZOFRAN [Concomitant]
  5. HALDOL [Concomitant]
  6. IMDUR [Concomitant]
  7. TIMOLOL MALEATE [Concomitant]
  8. XALATAN [Concomitant]
  9. LEXAPRO [Concomitant]
  10. NPH INSULIN [Concomitant]
  11. LASIX [Concomitant]

REACTIONS (1)
  - RASH [None]
